FAERS Safety Report 8123777-0 (Version None)
Quarter: 2012Q1

REPORT INFORMATION
  Report Type: 
  Country: None (occurrence: None)
  Receive Date: 20120208
  Receipt Date: 20120130
  Transmission Date: 20120608
  Serious: Yes (Other)
  Sender: FDA-Public Use
  Company Number: JP-ASTRAZENECA-2012SE07339

PATIENT
  Age: 58 Year
  Sex: Male

DRUGS (1)
  1. MARCAINE [Suspect]
     Indication: SPINAL ANAESTHESIA
     Route: 029
     Dates: start: 20110501, end: 20110501

REACTIONS (2)
  - MUSCULOSKELETAL DISORDER [None]
  - DIPLEGIA [None]
